FAERS Safety Report 11687544 (Version 6)
Quarter: 2015Q4

REPORT INFORMATION
  Report Type: Spontaneous
  Country: TR (occurrence: TR)
  Receive Date: 20151030
  Receipt Date: 20151208
  Transmission Date: 20160304
  Serious: Yes (Death, Hospitalization)
  Sender: FDA-Public Use
  Company Number: PHHY2015TR139947

PATIENT
  Age: 21 Year
  Sex: Male

DRUGS (10)
  1. PHENOBARBITAL. [Suspect]
     Active Substance: PHENOBARBITAL
     Indication: SEIZURE
     Route: 065
  2. LEVETIRACETAM. [Suspect]
     Active Substance: LEVETIRACETAM
     Indication: SEIZURE
     Route: 065
  3. TEGRETOL [Suspect]
     Active Substance: CARBAMAZEPINE
     Indication: EPILEPSY
     Route: 065
  4. ZONISAMIDE. [Suspect]
     Active Substance: ZONISAMIDE
     Indication: SEIZURE
     Route: 065
  5. PREGABALIN. [Suspect]
     Active Substance: PREGABALIN
     Indication: SEIZURE
     Route: 065
  6. LAMOTRIGINE. [Suspect]
     Active Substance: LAMOTRIGINE
     Indication: SEIZURE
     Route: 065
  7. TOPIRAMATE. [Suspect]
     Active Substance: TOPIRAMATE
     Indication: SEIZURE
     Route: 065
  8. VIGABATRIN [Suspect]
     Active Substance: VIGABATRIN
     Indication: SEIZURE
     Route: 065
  9. VALPROIC ACID SANDOZ [Suspect]
     Active Substance: VALPROIC ACID
     Indication: SEIZURE
     Route: 065
  10. STIRIPENTOL [Suspect]
     Active Substance: STIRIPENTOL
     Indication: SEIZURE
     Route: 065

REACTIONS (3)
  - Sudden unexplained death in epilepsy [Fatal]
  - Drug resistance [Unknown]
  - Seizure [Unknown]
